FAERS Safety Report 8452433-4 (Version None)
Quarter: 2012Q2

REPORT INFORMATION
  Report Type: 
  Country: None (occurrence: None)
  Receive Date: 20120620
  Receipt Date: 20120614
  Transmission Date: 20120825
  Serious: No
  Sender: FDA-Public Use
  Company Number: US-PFIZER INC-2012144074

PATIENT
  Sex: Male
  Weight: 104 kg

DRUGS (1)
  1. NEURONTIN [Suspect]
     Indication: BACK PAIN
     Dosage: 300 MG, DAILY
     Route: 048
     Dates: start: 20120101

REACTIONS (3)
  - MICTURITION DISORDER [None]
  - NEPHROPATHY TOXIC [None]
  - DYSURIA [None]
